FAERS Safety Report 6079353-7 (Version None)
Quarter: 2009Q1

REPORT INFORMATION
  Report Type: 
  Country: None (occurrence: None)
  Receive Date: 20090216
  Receipt Date: 20090209
  Transmission Date: 20090719
  Serious: Yes (Other)
  Sender: FDA-Public Use
  Company Number: US-ASTRAZENECA-2009UW03638

PATIENT
  Age: 55 Year
  Sex: Female

DRUGS (6)
  1. CRESTOR [Suspect]
     Route: 048
     Dates: start: 20040528
  2. LIPITOR [Suspect]
     Indication: CORONARY ARTERY DISEASE
     Route: 048
     Dates: start: 19970101, end: 20030101
  3. LIPITOR [Suspect]
     Route: 048
     Dates: start: 20030101
  4. LESCOL [Suspect]
     Dates: start: 20021007
  5. PROTONIX [Concomitant]
  6. PREVACID [Concomitant]

REACTIONS (18)
  - ARTHRALGIA [None]
  - BURSITIS [None]
  - CHEST DISCOMFORT [None]
  - DRUG INEFFECTIVE [None]
  - ENDOMETRIAL HYPERTROPHY [None]
  - FATIGUE [None]
  - INSOMNIA [None]
  - JOINT INJURY [None]
  - MUSCLE DISORDER [None]
  - MUSCLE SPASMS [None]
  - MUSCULAR WEAKNESS [None]
  - MUSCULOSKELETAL PAIN [None]
  - MYALGIA [None]
  - PAIN IN EXTREMITY [None]
  - SOMNOLENCE [None]
  - TENDON RUPTURE [None]
  - UTERINE CANCER [None]
  - UTERINE LEIOMYOMA [None]
